FAERS Safety Report 8043024-8 (Version None)
Quarter: 2012Q1

REPORT INFORMATION
  Report Type: 
  Country: None (occurrence: None)
  Receive Date: 20120112
  Receipt Date: 20120109
  Transmission Date: 20120608
  Serious: Yes (Hospitalization, Other)
  Sender: FDA-Public Use
  Company Number: PHHY2012BR002110

PATIENT
  Sex: Male

DRUGS (7)
  1. EXFORGE [Suspect]
     Indication: HYPERTENSION
     Dosage: 1 DF (160/5 MG), DAILY
  2. METOPROLOL SUCCINATE [Concomitant]
     Indication: CARDIAC DISORDER
  3. METOPROLOL SUCCINATE [Concomitant]
     Indication: ARRHYTHMIA
  4. SIMVASTATIN [Concomitant]
     Indication: ARRHYTHMIA
  5. SUSTRATE [Concomitant]
     Indication: CARDIAC DISORDER
  6. SUSTRATE [Concomitant]
     Indication: ARRHYTHMIA
  7. SIMVASTATIN [Concomitant]
     Indication: CARDIAC DISORDER

REACTIONS (4)
  - CHEST PAIN [None]
  - BLOOD PRESSURE DIASTOLIC DECREASED [None]
  - BLOOD PRESSURE SYSTOLIC INCREASED [None]
  - CORONARY ARTERY OCCLUSION [None]
